FAERS Safety Report 23788411 (Version 2)
Quarter: 2024Q2

REPORT INFORMATION
  Report Type: Spontaneous
  Country: US (occurrence: US)
  Receive Date: 20240426
  Receipt Date: 20240430
  Transmission Date: 20240716
  Serious: Yes (Hospitalization)
  Sender: FDA-Public Use
  Company Number: US-PFIZER INC-202400095027

PATIENT
  Age: 50 Year
  Sex: Female
  Weight: 62.6 kg

DRUGS (1)
  1. PROVERA [Suspect]
     Active Substance: MEDROXYPROGESTERONE ACETATE
     Indication: Menstrual cycle management
     Dosage: UNK, 1X/DAY
     Dates: end: 20240407

REACTIONS (8)
  - Hypoaesthesia oral [Unknown]
  - Pharyngeal hypoaesthesia [Unknown]
  - Dyspnoea [Unknown]
  - Retching [Unknown]
  - Hypoaesthesia [Unknown]
  - Paraesthesia [Unknown]
  - Bone pain [Unknown]
  - Tendon disorder [Unknown]
